FAERS Safety Report 16893345 (Version 1)
Quarter: 2019Q4

REPORT INFORMATION
  Report Type: Spontaneous
  Country: DE (occurrence: DE)
  Receive Date: 20191008
  Receipt Date: 20191008
  Transmission Date: 20200122
  Serious: Yes (Congenital Anomaly, Other)
  Sender: FDA-Public Use
  Company Number: DE-TEVA-2019-DE-1116853

PATIENT
  Age: 1 Day
  Sex: Female
  Weight: 3.46 kg

DRUGS (11)
  1. VIVIDRIN AKUT [Concomitant]
     Indication: MITE ALLERGY
     Dosage: ONLY IF REQUIRED
     Route: 064
  2. NIFEDIPIN [Suspect]
     Active Substance: NIFEDIPINE
     Indication: HYPERTENSION
     Dosage: 40 [MG/D (20-0-20) ]
     Route: 064
  3. L-THYROXIN [Concomitant]
     Active Substance: LEVOTHYROXINE SODIUM
     Indication: HYPOTHYROIDISM
     Dosage: 100 [MCG/D (BIS 50 MCG/D) / 277 DAYS
     Route: 064
     Dates: start: 20170922, end: 20180626
  4. CITALOPRAM [Suspect]
     Active Substance: CITALOPRAM HYDROBROMIDE
     Indication: DEPRESSION
     Dosage: 20 [MG/D (20-0-0) / DAY/ 277 DAYS
     Route: 064
     Dates: start: 20170922, end: 20180626
  5. VIGANTOLETTEN 1000 [Concomitant]
     Indication: VITAMIN D DEFICIENCY
     Dosage: 1000 [I.E./D / 277 DAYS
     Route: 064
     Dates: start: 20170922, end: 20180626
  6. METOHEXAL [Suspect]
     Active Substance: METOPROLOL
     Indication: HYPERTENSION
     Dosage: 142.5 [MG/D (95-0-47.5) / 277 DAYS
     Route: 064
     Dates: start: 20170922, end: 20180626
  7. VIANI DISKUS [Concomitant]
     Active Substance: FLUTICASONE PROPIONATE\SALMETEROL XINAFOATE
     Indication: ASTHMA
     Dosage: 277 DAYS
     Route: 064
     Dates: start: 20170922, end: 20180626
  8. AMLODIPINE [Suspect]
     Active Substance: AMLODIPINE BESYLATE
     Indication: HYPERTENSION
     Dosage: 10 [MG/D ]
     Route: 064
  9. SALBUTAMOL [Concomitant]
     Active Substance: ALBUTEROL
     Indication: ASTHMA
     Dosage: VERY SELDOM, ONLY IF REQUIRED. PROBABLY EVERY 4 TO 5 WEEKS ONCE.
     Route: 064
  10. HCT DEXCEL [Suspect]
     Active Substance: HYDROCHLOROTHIAZIDE
     Indication: HYPERTENSION
     Dosage: 12.5 [MG/D (12.5-0-0) / 277 DAYS
     Route: 064
     Dates: start: 20170922, end: 20180626
  11. ECURAL FETTCREME [Concomitant]
     Active Substance: MOMETASONE FUROATE
     Indication: NEURODERMATITIS
     Dosage: ONTO VERY SMALL AREA
     Route: 064

REACTIONS (3)
  - Atrial septal defect [Not Recovered/Not Resolved]
  - Arrhythmia neonatal [Recovered/Resolved]
  - Foetal exposure during pregnancy [Unknown]

NARRATIVE: CASE EVENT DATE: 20180626
